FAERS Safety Report 6028073-3 (Version None)
Quarter: 2009Q1

REPORT INFORMATION
  Report Type: 
  Country: None (occurrence: None)
  Receive Date: 20090102
  Receipt Date: 20081215
  Transmission Date: 20090719
  Serious: Yes (Death)
  Sender: FDA-Public Use
  Company Number: KV200801134

PATIENT
  Age: 71 Year
  Sex: Male
  Weight: 90.7 kg

DRUGS (1)
  1. ISOSORBIDE MONONITRATE [Suspect]
     Indication: CARDIAC DISORDER
     Dosage: 30 MG, QD, ORAL
     Route: 048
     Dates: start: 20061005, end: 20070830

REACTIONS (7)
  - CARDIAC ARREST [None]
  - DIZZINESS [None]
  - DYSPNOEA [None]
  - FATIGUE [None]
  - HYPOTENSION [None]
  - PALLOR [None]
  - PRODUCT QUALITY ISSUE [None]
